FAERS Safety Report 14152389 (Version 1)
Quarter: 2017Q4

REPORT INFORMATION
  Report Type: Spontaneous
  Country: US (occurrence: None)
  Receive Date: 20171102
  Receipt Date: 20171102
  Transmission Date: 20180321
  Serious: Yes (Other)
  Sender: FDA-Public Use
  Company Number: None

PATIENT
  Age: 54 Year
  Sex: Female
  Weight: 59 kg

DRUGS (1)
  1. CEFTRIAXONE. [Suspect]
     Active Substance: CEFTRIAXONE
     Indication: LYME DISEASE
     Route: 042
     Dates: start: 20171005, end: 20171025

REACTIONS (3)
  - Neutrophil count abnormal [None]
  - White blood cell count abnormal [None]
  - Eosinophil count abnormal [None]

NARRATIVE: CASE EVENT DATE: 20171024
